FAERS Safety Report 7776874-3 (Version None)
Quarter: 2011Q3

REPORT INFORMATION
  Report Type: 
  Country: None (occurrence: None)
  Receive Date: 20110926
  Receipt Date: 20110914
  Transmission Date: 20111222
  Serious: Yes (Death, Hospitalization)
  Sender: FDA-Public Use
  Company Number: ES-CELGENEUS-144-21880-11091745

PATIENT
  Sex: Female

DRUGS (9)
  1. REVLIMID [Suspect]
     Indication: MULTIPLE MYELOMA
     Dosage: 15 MILLIGRAM
     Route: 048
     Dates: start: 20110727, end: 20110817
  2. DIGOXIN [Concomitant]
     Indication: ARRHYTHMIA
     Route: 048
     Dates: start: 20110816, end: 20110817
  3. VALIUM [Concomitant]
     Indication: ANXIETY
     Route: 041
     Dates: start: 20110816, end: 20110817
  4. OMEPRAZOLE [Concomitant]
     Indication: PROPHYLAXIS
     Route: 048
     Dates: start: 20110814, end: 20110817
  5. CYCLOPHOSPHAMIDE [Suspect]
     Indication: MULTIPLE MYELOMA
     Route: 048
     Dates: start: 20110727, end: 20110816
  6. PRIMPERAN TAB [Concomitant]
  7. LEVODOPA [Concomitant]
     Dosage: 100/25
     Route: 048
     Dates: start: 20110816, end: 20110817
  8. PREDNISONE [Suspect]
     Indication: MULTIPLE MYELOMA
     Route: 048
     Dates: start: 20110727, end: 20110816
  9. PRIMPERAN TAB [Concomitant]
     Indication: ANTIEMETIC SUPPORTIVE CARE
     Dosage: 1 AMPOULE
     Route: 041
     Dates: start: 20110817, end: 20110817

REACTIONS (2)
  - PERIPHERAL ISCHAEMIA [None]
  - INTESTINAL ISCHAEMIA [None]
